FAERS Safety Report 6905994-8 (Version None)
Quarter: 2010Q3

REPORT INFORMATION
  Report Type: 
  Country: None (occurrence: None)
  Receive Date: 20100804
  Receipt Date: 20100722
  Transmission Date: 20110219
  Serious: Yes (Other)
  Sender: FDA-Public Use
  Company Number: PHHY2010IT47922

PATIENT
  Age: 60 Year
  Sex: Male

DRUGS (7)
  1. CYCLOSPORINE [Suspect]
     Indication: PSORIASIS
     Dosage: 250 MG/DAY
  2. CYCLOSPORINE [Suspect]
     Dosage: 140 MG/DAY
  3. PREDNISONE [Concomitant]
     Dosage: 60 MG/DAY
  4. PREDNISONE [Concomitant]
     Dosage: 15 MG/DAY
  5. AZATHIOPRINE [Concomitant]
     Dosage: 100 MG/DAY
  6. AZATHIOPRINE [Concomitant]
     Dosage: 50 MG/DAY
  7. GLIMEPIRIDE [Concomitant]
     Indication: DIABETES MELLITUS

REACTIONS (6)
  - ACANTHOLYSIS [None]
  - CONDITION AGGRAVATED [None]
  - DERMATITIS BULLOUS [None]
  - PEMPHIGUS [None]
  - PSORIASIS [None]
  - SKIN EROSION [None]
